FAERS Safety Report 17679003 (Version 1)
Quarter: 2020Q2

REPORT INFORMATION
  Report Type: Report from Study
  Country: US (occurrence: US)
  Receive Date: 20200417
  Receipt Date: 20200417
  Transmission Date: 20200714
  Serious: Yes (Death, Other)
  Sender: FDA-Public Use
  Company Number: US-ROCHE-1847486

PATIENT
  Age: 66 Year
  Sex: Male
  Weight: 131.66 kg

DRUGS (9)
  1. ESBRIET [Suspect]
     Active Substance: PIRFENIDONE
     Indication: IDIOPATHIC PULMONARY FIBROSIS
     Dosage: 3 PILLS 3 TIMES A DAY
     Route: 048
     Dates: start: 20160914, end: 20161030
  2. OMEPRAZOLE. [Concomitant]
     Active Substance: OMEPRAZOLE
     Route: 065
  3. LABETALOL [Concomitant]
     Active Substance: LABETALOL\LABETALOL HYDROCHLORIDE
     Route: 065
  4. ESBRIET [Suspect]
     Active Substance: PIRFENIDONE
     Dosage: 1 PILL 3 TIMES PER DAY; ONGOING:NO
     Route: 048
     Dates: start: 20161031, end: 201611
  5. ESBRIET [Suspect]
     Active Substance: PIRFENIDONE
     Dosage: 1 PILL 3 TIMES A DAY
     Route: 048
     Dates: start: 20161117, end: 201704
  6. CLONIDINE. [Concomitant]
     Active Substance: CLONIDINE
     Route: 065
  7. ALLOPURINOL. [Concomitant]
     Active Substance: ALLOPURINOL
  8. ESBRIET [Suspect]
     Active Substance: PIRFENIDONE
     Dosage: 2 TABLETS 3 TIMES PER DAY; ONGOING:YES
     Route: 048
     Dates: start: 201704
  9. ASPIRIN [ACETYLSALICYLIC ACID] [Concomitant]
     Active Substance: ASPIRIN
     Dosage: AT NIGHT
     Route: 065

REACTIONS (5)
  - Hepatic enzyme increased [Recovering/Resolving]
  - Death [Fatal]
  - Hepatic enzyme increased [Unknown]
  - Fatigue [Unknown]
  - Myalgia [Unknown]

NARRATIVE: CASE EVENT DATE: 20161014
